FAERS Safety Report 13807421 (Version 2)
Quarter: 2017Q3

REPORT INFORMATION
  Report Type: Spontaneous
  Country: US (occurrence: US)
  Receive Date: 20170728
  Receipt Date: 20170801
  Transmission Date: 20171127
  Serious: Yes (Other)
  Sender: FDA-Public Use
  Company Number: US-009507513-1707USA011198

PATIENT
  Sex: Female
  Weight: 68.48 kg

DRUGS (2)
  1. TYLENOL [Concomitant]
     Active Substance: ACETAMINOPHEN
  2. NEXPLANON [Suspect]
     Active Substance: ETONOGESTREL
     Indication: CONTRACEPTION
     Dosage: 1 DF, EVERY 3 YEARS; ROUTE OF ADMINISTRATION: LEFT ARM-IMPLANT
     Route: 059
     Dates: start: 20170623

REACTIONS (7)
  - Hypoaesthesia [Unknown]
  - Headache [Unknown]
  - Hypoaesthesia [Unknown]
  - Abdominal distension [Unknown]
  - Weight increased [Unknown]
  - Haematemesis [Unknown]
  - Abdominal pain upper [Unknown]

NARRATIVE: CASE EVENT DATE: 2017
